FAERS Safety Report 7168940 (Version 3)
Quarter: 2015Q1

REPORT INFORMATION
  Report Type: Spontaneous
  Country: FR (occurrence: None)
  Receive Date: 20091023
  Receipt Date: 20150109
  Transmission Date: 20150721
  Serious: Yes (Other)
  Sender: FDA-Public Use
  Company Number: JPI-P-006443

PATIENT
  Age: 40 Year
  Sex: Male

DRUGS (3)
  1. MODAFINIL. [Concomitant]
     Active Substance: MODAFINIL
  2. XYREM [Suspect]
     Active Substance: SODIUM OXYBATE
     Indication: NARCOLEPSY
     Dosage: FIRST NIGHTLY DOSE, ORAL
     Route: 048
     Dates: start: 20081024, end: 20081027
  3. XYREM [Suspect]
     Active Substance: SODIUM OXYBATE
     Indication: CATAPLEXY
     Dosage: FIRST NIGHTLY DOSE, ORAL
     Route: 048
     Dates: start: 20081024, end: 20081027

REACTIONS (6)
  - Palpitations [None]
  - Chest discomfort [None]
  - Sinus tachycardia [None]
  - Colitis [None]
  - Headache [None]
  - Treatment noncompliance [None]

NARRATIVE: CASE EVENT DATE: 20081024
